FAERS Safety Report 8111313-4 (Version None)
Quarter: 2012Q1

REPORT INFORMATION
  Report Type: 
  Country: None (occurrence: None)
  Receive Date: 20120203
  Receipt Date: 20110826
  Transmission Date: 20120608
  Serious: No
  Sender: FDA-Public Use
  Company Number: US-GLAXOSMITHKLINE-A0942514A

PATIENT
  Age: 35 Year
  Sex: Female

DRUGS (4)
  1. VITAMINS A + D [Concomitant]
  2. LAMOTRIGINE [Suspect]
     Indication: AFFECTIVE DISORDER
     Dosage: 50MG PER DAY
     Route: 048
     Dates: start: 20110810
  3. LOVAZA [Concomitant]
  4. ATIVAN [Concomitant]

REACTIONS (1)
  - ANXIETY [None]
